FAERS Safety Report 24268620 (Version 1)
Quarter: 2024Q3

REPORT INFORMATION
  Report Type: Spontaneous
  Country: GB (occurrence: GB)
  Receive Date: 20240830
  Receipt Date: 20240830
  Transmission Date: 20241017
  Serious: Yes (Other)
  Sender: CELLTRION
  Company Number: GB-CELLTRION INC.-2024GB020584

PATIENT

DRUGS (1)
  1. YUFLYMA [Suspect]
     Active Substance: ADALIMUMAB-AATY
     Indication: Colitis ulcerative
     Dosage: 40MG PEN PK2/120MG X3 40MG PENS
     Route: 058
     Dates: start: 202408

REACTIONS (9)
  - Head injury [Unknown]
  - Syncope [Unknown]
  - Fall [Unknown]
  - Loss of consciousness [Unknown]
  - Dizziness [Unknown]
  - Adverse drug reaction [Unknown]
  - Face injury [Unknown]
  - Somnolence [Unknown]
  - Headache [Unknown]
